FAERS Safety Report 9737473 (Version 2)
Quarter: 2013Q4

REPORT INFORMATION
  Report Type: Not Available
  Country: US (occurrence: US)
  Receive Date: 20131206
  Receipt Date: 20131206
  Transmission Date: 20140711
  Serious: Yes (Hospitalization)
  Sender: FDA-Public Use
  Company Number: US-ONYX-2013-1806

PATIENT
  Age: 43 Year
  Sex: Female

DRUGS (7)
  1. KYPROLIS [Suspect]
     Indication: PLASMA CELL MYELOMA
     Route: 042
     Dates: start: 201210
  2. KYPROLIS [Suspect]
     Route: 042
  3. DECADRON [Concomitant]
  4. LISINOPRIL [Concomitant]
     Indication: HYPERTENSION
  5. LIPITOR [Concomitant]
     Indication: BLOOD CHOLESTEROL INCREASED
  6. CLONIDINE [Concomitant]
     Indication: HYPERTENSION
  7. DILANTIN [Concomitant]
     Indication: CONVULSION

REACTIONS (10)
  - Urinary tract infection [Unknown]
  - Pneumonia streptococcal [Unknown]
  - Hepatic failure [Recovering/Resolving]
  - Streptococcal sepsis [Recovering/Resolving]
  - Renal failure acute [Recovering/Resolving]
  - Hyperkalaemia [Unknown]
  - Metabolic acidosis [Unknown]
  - Hyponatraemia [Unknown]
  - Hypocalcaemia [Unknown]
  - Anaemia [Unknown]
